FAERS Safety Report 6197966-9 (Version None)
Quarter: 2009Q2

REPORT INFORMATION
  Report Type: 
  Country: None (occurrence: None)
  Receive Date: 20090521
  Receipt Date: 20090513
  Transmission Date: 20091009
  Serious: Yes (Life-Threatening, Hospitalization)
  Sender: FDA-Public Use
  Company Number: B0574920A

PATIENT
  Sex: Female

DRUGS (3)
  1. WELLBUTRIN [Suspect]
     Route: 048
     Dates: start: 20090429, end: 20090502
  2. EFFEXOR [Suspect]
     Route: 048
     Dates: end: 20090429
  3. NEXIUM [Concomitant]
     Dosage: 20MG PER DAY
     Route: 048

REACTIONS (6)
  - ARRHYTHMIA [None]
  - CARDIAC ARREST [None]
  - HEAD INJURY [None]
  - RETCHING [None]
  - SYNCOPE [None]
  - VOMITING [None]
